FAERS Safety Report 24294287 (Version 1)
Quarter: 2024Q3

REPORT INFORMATION
  Report Type: Spontaneous
  Country: US (occurrence: US)
  Receive Date: 20240906
  Receipt Date: 20240906
  Transmission Date: 20241017
  Serious: No
  Sender: DOMPE FARMACEUTICI
  Company Number: US-FARMAPROD-202406-2406

PATIENT
  Sex: Female

DRUGS (16)
  1. OXERVATE [Suspect]
     Active Substance: CENEGERMIN-BKBJ
     Indication: Neurotrophic keratopathy
     Route: 047
     Dates: start: 20240617
  2. TYRVAYA [Concomitant]
     Active Substance: VARENICLINE TARTRATE
     Dosage: 0.03/SPRAY
  3. ESTRACE [Concomitant]
     Active Substance: ESTRADIOL
  4. TRAMADOL HCL [Concomitant]
     Active Substance: TRAMADOL HYDROCHLORIDE
  5. CLONAZEPAM [Concomitant]
     Active Substance: CLONAZEPAM
  6. ACETAMINOPHEN [Concomitant]
     Active Substance: ACETAMINOPHEN
  7. SYSTANE (HYPROMELLOSE 2910 (4000 MPA.S)) [Concomitant]
     Active Substance: HYPROMELLOSE 2910 (4000 MPA.S)
     Dosage: 0.3 %-0.4%
  8. SYSTANE (HYPROMELLOSE 2910 (4000 MPA.S)) [Concomitant]
     Active Substance: HYPROMELLOSE 2910 (4000 MPA.S)
     Dosage: 3 %-94 %
  9. IVIZIA [Concomitant]
     Active Substance: POVIDONE
  10. TOBRADEX ST [Concomitant]
     Active Substance: DEXAMETHASONE\TOBRAMYCIN
     Dosage: 0.3%-0.05%
  11. MILK OF MAGNESIA [Concomitant]
     Active Substance: MAGNESIUM HYDROXIDE
  12. MIRALAX [Concomitant]
     Active Substance: POLYETHYLENE GLYCOL 3350
     Dosage: 17 G/DOSE
  13. CALCIUM [Concomitant]
     Active Substance: CALCIUM
  14. VITAMIN D3 [Concomitant]
     Active Substance: CHOLECALCIFEROL
  15. MIEBO [Concomitant]
     Active Substance: PERFLUOROHEXYLOCTANE
  16. OMEPRAZOLE [Concomitant]
     Active Substance: OMEPRAZOLE

REACTIONS (1)
  - Eye swelling [Unknown]
